FAERS Safety Report 6962331-0 (Version None)
Quarter: 2010Q3

REPORT INFORMATION
  Report Type: 
  Country: None (occurrence: None)
  Receive Date: 20100823
  Receipt Date: 20100715
  Transmission Date: 20110219
  Serious: No
  Sender: FDA-Public Use
  Company Number: 015598

PATIENT
  Sex: Female
  Weight: 51.3 kg

DRUGS (2)
  1. CIMZIA [Suspect]
     Indication: RHEUMATOID ARTHRITIS
     Dosage: (400 MG 1X/MONTH SUBCUTANEOUS)
     Route: 058
     Dates: start: 20100101
  2. METHOTREXATE [Concomitant]

REACTIONS (2)
  - INJECTION SITE DISCOLOURATION [None]
  - INJECTION SITE SWELLING [None]
